FAERS Safety Report 15385484 (Version 1)
Quarter: 2018Q3

REPORT INFORMATION
  Report Type: Spontaneous
  Country: US (occurrence: US)
  Receive Date: 20180914
  Receipt Date: 20180914
  Transmission Date: 20181010
  Serious: No
  Sender: FDA-Public Use
  Company Number: US-TEVA-2018-US-952903

PATIENT
  Sex: Male

DRUGS (1)
  1. CYCLOBENZAPRINE. [Suspect]
     Active Substance: CYCLOBENZAPRINE
     Route: 065

REACTIONS (2)
  - Dysphagia [Unknown]
  - Foreign body in gastrointestinal tract [Unknown]

NARRATIVE: CASE EVENT DATE: 201808
